FAERS Safety Report 20989145 (Version 1)
Quarter: 2022Q2

REPORT INFORMATION
  Report Type: Report from Study
  Country: US (occurrence: US)
  Receive Date: 20220621
  Receipt Date: 20220621
  Transmission Date: 20220720
  Serious: Yes (Other)
  Sender: FDA-Public Use
  Company Number: US-SA-2022SA232139

PATIENT
  Age: 66 Year
  Sex: Female

DRUGS (16)
  1. DUPILUMAB [Suspect]
     Active Substance: DUPILUMAB
     Indication: Dermatitis
     Dosage: UNK
  2. DUPILUMAB [Suspect]
     Active Substance: DUPILUMAB
     Indication: Dermatitis atopic
  3. METHOTREXATE [Suspect]
     Active Substance: METHOTREXATE
     Indication: Dermatitis
     Dosage: UNK
  4. METHOTREXATE [Suspect]
     Active Substance: METHOTREXATE
     Indication: Dermatitis atopic
  5. CORTICOSTEROID NOS [Concomitant]
     Active Substance: CORTICOSTEROID NOS
     Indication: Dermatitis
     Route: 061
  6. CORTICOSTEROID NOS [Concomitant]
     Active Substance: CORTICOSTEROID NOS
     Indication: Dermatitis atopic
     Dosage: UNK
     Route: 062
  7. DAPSONE [Concomitant]
     Active Substance: DAPSONE
     Indication: Dermatitis
  8. DAPSONE [Concomitant]
     Active Substance: DAPSONE
     Indication: Dermatitis atopic
  9. GABAPENTIN [Concomitant]
     Active Substance: GABAPENTIN
     Indication: Dermatitis
  10. GABAPENTIN [Concomitant]
     Active Substance: GABAPENTIN
     Indication: Dermatitis atopic
  11. ADALIMUMAB [Concomitant]
     Active Substance: ADALIMUMAB
     Indication: Dermatitis
  12. ADALIMUMAB [Concomitant]
     Active Substance: ADALIMUMAB
     Indication: Dermatitis atopic
  13. MYCOPHENOLATE MOFETIL [Concomitant]
     Active Substance: MYCOPHENOLATE MOFETIL
     Indication: Dermatitis
  14. MYCOPHENOLATE MOFETIL [Concomitant]
     Active Substance: MYCOPHENOLATE MOFETIL
     Indication: Dermatitis atopic
  15. INTERFERON [Concomitant]
     Active Substance: INTERFERON
     Indication: Dermatitis
  16. INTERFERON [Concomitant]
     Active Substance: INTERFERON
     Indication: Dermatitis atopic

REACTIONS (4)
  - Cutaneous T-cell lymphoma stage II [Unknown]
  - Abscess [Unknown]
  - Lymphocytic infiltration [Unknown]
  - Off label use [Unknown]
